FAERS Safety Report 5060718-7 (Version None)
Quarter: 2006Q3

REPORT INFORMATION
  Report Type: 
  Country: None (occurrence: None)
  Receive Date: 20060719
  Receipt Date: 20060719
  Transmission Date: 20061208
  Serious: No
  Sender: FDA-Public Use
  Company Number: None

PATIENT
  Age: 82 Year
  Sex: Female

DRUGS (2)
  1. UROQID-A #2 TAB [Suspect]
     Indication: INFECTION PROPHYLAXIS
     Dosage: ONE TABLET 3 TIMES A DAY
     Dates: start: 20060505
  2. UROQID-A #2 TAB [Suspect]
     Indication: URINARY TRACT INFECTION
     Dosage: ONE TABLET 3 TIMES A DAY
     Dates: start: 20060505

REACTIONS (4)
  - CYSTITIS [None]
  - DRUG EFFECT DECREASED [None]
  - PHARMACEUTICAL PRODUCT COMPLAINT [None]
  - POOR QUALITY DRUG ADMINISTERED [None]
